FAERS Safety Report 12521318 (Version 1)
Quarter: 2016Q3

REPORT INFORMATION
  Report Type: Spontaneous
  Country: US (occurrence: US)
  Receive Date: 20160701
  Receipt Date: 20160701
  Transmission Date: 20161109
  Serious: Yes (Other)
  Sender: FDA-Public Use
  Company Number: US-SUN PHARMACEUTICAL INDUSTRIES LTD-2016US-119434

PATIENT
  Age: 56 Year
  Sex: Female

DRUGS (1)
  1. SALBUTAMOL [Suspect]
     Active Substance: ALBUTEROL
     Indication: ASTHMA
     Dosage: 3-4 TIMES DAILY FOR SEVERAL DAYS AND 2 ADDITIONAL ROUNDS OF 7.5 (5MG/ML)
     Route: 055

REACTIONS (3)
  - Lactic acidosis [Recovering/Resolving]
  - Respiratory distress [Unknown]
  - Leukocytosis [Unknown]
